FAERS Safety Report 17123609 (Version 1)
Quarter: 2019Q4

REPORT INFORMATION
  Report Type: Spontaneous
  Country: US (occurrence: US)
  Receive Date: 20191206
  Receipt Date: 20191206
  Transmission Date: 20200122
  Serious: No
  Sender: FDA-Public Use
  Company Number: US-COVIS PHARMA B.V.-2019COV00293

PATIENT
  Age: 58 Year
  Sex: Female
  Weight: 61.68 kg

DRUGS (7)
  1. MAGNESIUM [Concomitant]
     Active Substance: MAGNESIUM
  2. VITAMIN C [Concomitant]
     Active Substance: ASCORBIC ACID
  3. UNSPECIFIED IMMUNE SUPPORT PILL [Concomitant]
  4. ALVESCO [Suspect]
     Active Substance: CICLESONIDE
     Indication: ASTHMA
     Dosage: 1 PUFF, 1X/DAY AT NIGHT
     Dates: start: 201910
  5. ALLEGRA [Concomitant]
     Active Substance: FEXOFENADINE HYDROCHLORIDE
  6. ALVESCO [Suspect]
     Active Substance: CICLESONIDE
     Indication: MULTIPLE ALLERGIES
  7. CALCIUM [Concomitant]
     Active Substance: CALCIUM

REACTIONS (2)
  - Respiration abnormal [Recovering/Resolving]
  - Therapeutic product effect delayed [Recovered/Resolved]

NARRATIVE: CASE EVENT DATE: 201910
